FAERS Safety Report 6974067-0 (Version None)
Quarter: 2010Q3

REPORT INFORMATION
  Report Type: 
  Country: None (occurrence: None)
  Receive Date: 20100824
  Receipt Date: 20100505
  Transmission Date: 20110219
  Serious: No
  Sender: FDA-Public Use
  Company Number: 308149

PATIENT
  Age: 38 Year
  Sex: Female

DRUGS (1)
  1. VICTOZA [Suspect]
     Indication: BLOOD GLUCOSE INCREASED
     Dosage: 1.8 MG, QD, SUBCUTANEOUS
     Route: 058

REACTIONS (1)
  - BLOOD GLUCOSE INCREASED [None]
